FAERS Safety Report 7986022-2 (Version None)
Quarter: 2011Q4

REPORT INFORMATION
  Report Type: 
  Country: None (occurrence: None)
  Receive Date: 20111216
  Receipt Date: 20101226
  Transmission Date: 20120403
  Serious: No
  Sender: FDA-Public Use
  Company Number: US-BRISTOL-MYERS SQUIBB COMPANY-15461254

PATIENT
  Age: 39 Year
  Sex: Female
  Weight: 64 kg

DRUGS (1)
  1. ABILIFY [Suspect]
     Dosage: INITAL DOSE: 5MG, THEN 10MG, 15MG AND THEN 30MG; 15MG GIVEN ON 25DEC2010 INSTEAD OF 30MG.

REACTIONS (3)
  - WEIGHT INCREASED [None]
  - DRUG ADMINISTRATION ERROR [None]
  - RESTLESSNESS [None]
